FAERS Safety Report 15221054 (Version 1)
Quarter: 2018Q3

REPORT INFORMATION
  Report Type: Report from Study
  Country: PH (occurrence: PH)
  Receive Date: 20180731
  Receipt Date: 20180731
  Transmission Date: 20181010
  Serious: Yes (Death, Other)
  Sender: FDA-Public Use
  Company Number: PH-PFIZER INC-2018302827

PATIENT
  Sex: Male

DRUGS (5)
  1. FUROSEMIDE. [Suspect]
     Active Substance: FUROSEMIDE
     Indication: HYPOVOLAEMIA
     Dosage: UNK, ALTERNATE DAY (EVERY OTHER DAY)
  2. TICARCILLIN [Suspect]
     Active Substance: TICARCILLIN
     Dosage: 500 MG, UNK
  3. MUCOSTA [Suspect]
     Active Substance: REBAMIPIDE
     Dosage: UNK
  4. ALDACTONE [Suspect]
     Active Substance: SPIRONOLACTONE
     Indication: HYPOVOLAEMIA
     Dosage: 50 MG, UNK
  5. AMINOLEBAN EN [Suspect]
     Active Substance: UNSPECIFIED INGREDIENT
     Indication: HEPATIC STEATOSIS
     Dosage: 50 MG, UNK
     Route: 048

REACTIONS (5)
  - Death [Fatal]
  - Cardiac failure congestive [Unknown]
  - Hepatic cirrhosis [Unknown]
  - Nephrolithiasis [Unknown]
  - Atrial tachycardia [Unknown]

NARRATIVE: CASE EVENT DATE: 20180619
